FAERS Safety Report 15151748 (Version 2)
Quarter: 2019Q1

REPORT INFORMATION
  Report Type: Report from Study
  Country: JP (occurrence: JP)
  Receive Date: 20180716
  Receipt Date: 20190103
  Transmission Date: 20190417
  Serious: Yes (Hospitalization, Other)
  Sender: FDA-Public Use
  Company Number: JP-ALEXION PHARMACEUTICALS INC.-A201600642

PATIENT
  Age: 33 Year
  Sex: Male
  Weight: 60 kg

DRUGS (21)
  1. SOLIRIS [Suspect]
     Active Substance: ECULIZUMAB
     Indication: ATYPICAL HAEMOLYTIC URAEMIC SYNDROME
     Dosage: 900 MG, QW
     Route: 042
     Dates: start: 20120113
  2. GRACEPTOR [Concomitant]
     Active Substance: TACROLIMUS
     Dosage: 5.5 MG, QD
     Route: 048
     Dates: start: 20120423, end: 20130501
  3. NERIPROCT [Concomitant]
     Active Substance: DIFLUCORTOLONE VALERATE\LIDOCAINE
     Indication: HAEMORRHOIDS
     Dosage: UNK, PRN
     Route: 054
     Dates: start: 2008, end: 20150109
  4. SOLIRIS [Suspect]
     Active Substance: ECULIZUMAB
     Dosage: 1200 MG, Q2W
     Route: 042
  5. SOLIRIS [Suspect]
     Active Substance: ECULIZUMAB
     Dosage: 1200 MG, Q2W
     Route: 042
  6. GRACEPTOR [Concomitant]
     Active Substance: TACROLIMUS
     Dosage: 5 MG, QD
     Route: 048
     Dates: start: 20120127, end: 20120422
  7. MEDROL [Concomitant]
     Active Substance: METHYLPREDNISOLONE
     Indication: PROPHYLAXIS AGAINST TRANSPLANT REJECTION
     Dosage: 4 MG, QD
     Route: 048
     Dates: start: 201106
  8. SOLIRIS [Suspect]
     Active Substance: ECULIZUMAB
     Dosage: 1200 MG, Q2W
     Route: 042
  9. ATELEC [Concomitant]
     Active Substance: CILNIDIPINE
     Dosage: 10 MG, BID
     Route: 048
     Dates: start: 20140320
  10. BLOPRESS [Concomitant]
     Active Substance: CANDESARTAN CILEXETIL
     Dosage: 8 MG, QD
     Route: 048
     Dates: start: 20111221, end: 20141114
  11. GRACEPTOR [Concomitant]
     Active Substance: TACROLIMUS
     Dosage: 7 MG, QD
     Route: 048
     Dates: start: 20130809, end: 20130920
  12. BACTAR [Concomitant]
     Active Substance: SULFAMERAZINE\TRIMETHOPRIM
     Indication: INFECTION PROPHYLAXIS
     Dosage: 1 DF, TIW
     Route: 048
     Dates: start: 20111118
  13. BLOPRESS [Concomitant]
     Active Substance: CANDESARTAN CILEXETIL
     Indication: SECONDARY HYPERTENSION
     Dosage: 8 MG, QD
     Route: 048
     Dates: start: 20111220, end: 20111220
  14. GRACEPTOR [Concomitant]
     Active Substance: TACROLIMUS
     Dosage: 8 MG, QD
     Route: 048
     Dates: start: 20130921, end: 20131018
  15. GRACEPTOR [Concomitant]
     Active Substance: TACROLIMUS
     Dosage: 7 MG, QD
     Route: 048
     Dates: start: 20131019
  16. CELLCEPT [Concomitant]
     Active Substance: MYCOPHENOLATE MOFETIL\MYCOPHENOLATE MOFETIL HYDROCHLORIDE
     Indication: PROPHYLAXIS AGAINST TRANSPLANT REJECTION
     Dosage: 500 MG, BID
     Route: 048
     Dates: start: 20141102
  17. ATELEC [Concomitant]
     Active Substance: CILNIDIPINE
     Indication: SECONDARY HYPERTENSION
     Dosage: 5 MG, BID
     Route: 048
     Dates: start: 201106, end: 20140319
  18. GRACEPTOR [Concomitant]
     Active Substance: TACROLIMUS
     Dosage: 6 MG, QD
     Route: 048
     Dates: start: 20130502, end: 20130808
  19. BREDININ [Concomitant]
     Active Substance: MIZORIBINE
     Indication: PROPHYLAXIS AGAINST TRANSPLANT REJECTION
     Dosage: 100 MG, BID
     Route: 048
     Dates: start: 201106, end: 20141101
  20. PARIET [Concomitant]
     Active Substance: RABEPRAZOLE SODIUM
     Indication: PROPHYLAXIS
     Dosage: 10 MG, QD
     Route: 048
     Dates: start: 201106
  21. GRACEPTOR [Concomitant]
     Active Substance: TACROLIMUS
     Indication: PROPHYLAXIS AGAINST TRANSPLANT REJECTION
     Dosage: 4 MG, QD
     Route: 048
     Dates: start: 201106, end: 20120126

REACTIONS (5)
  - Upper respiratory tract infection [Recovered/Resolved]
  - Nasopharyngitis [Recovered/Resolved]
  - Cholelithiasis [Recovered/Resolved]
  - Arteriovenous fistula aneurysm [Recovered/Resolved]
  - Secondary hypertension [Recovered/Resolved]

NARRATIVE: CASE EVENT DATE: 20131115
